FAERS Safety Report 8443983-5 (Version None)
Quarter: 2012Q2

REPORT INFORMATION
  Report Type: 
  Country: None (occurrence: None)
  Receive Date: 20120618
  Receipt Date: 20120611
  Transmission Date: 20120825
  Serious: Yes (Other)
  Sender: FDA-Public Use
  Company Number: PHHY2009JP14828

PATIENT
  Sex: Male

DRUGS (10)
  1. TASIGNA [Suspect]
     Indication: CHRONIC MYELOID LEUKAEMIA
     Dosage: 800 MG, UNK
     Route: 048
     Dates: start: 20090328, end: 20100729
  2. TASIGNA [Suspect]
     Dosage: 600 MG, DAILY
     Dates: start: 20100730
  3. PRAVASTATIN [Concomitant]
     Dosage: 10 MG, UNK
     Route: 048
     Dates: start: 20090328
  4. TAMSULOSIN HCL [Concomitant]
     Indication: BENIGN PROSTATIC HYPERPLASIA
     Dosage: 0.2 MG, UNK
     Route: 048
     Dates: start: 20090723
  5. VERAPAMIL HCL [Concomitant]
     Dosage: 120 MG, UNK
     Route: 048
     Dates: start: 20090328
  6. FERRUM [Concomitant]
     Dosage: 305 MG, UNK
     Route: 048
     Dates: start: 20090328
  7. SPIRIVA [Concomitant]
     Indication: CHRONIC OBSTRUCTIVE PULMONARY DISEASE
     Dosage: 18 UG, UNK
     Dates: start: 20090401
  8. THEO-DUR [Concomitant]
     Dosage: 300 MG, UNK
     Route: 048
     Dates: start: 20090328
  9. VITAMIN B12 [Concomitant]
     Dosage: 1500 UG, UNK
     Route: 048
     Dates: start: 20090328
  10. ALVESCO [Concomitant]
     Dosage: 400 UG, UNK
     Route: 048
     Dates: start: 20090428

REACTIONS (3)
  - LIPASE INCREASED [None]
  - PYREXIA [None]
  - ELECTROCARDIOGRAM QT PROLONGED [None]
